FAERS Safety Report 12581337 (Version 2)
Quarter: 2016Q3

REPORT INFORMATION
  Report Type: Spontaneous
  Country: AR (occurrence: AR)
  Receive Date: 20160721
  Receipt Date: 20160805
  Transmission Date: 20161109
  Serious: Yes (Other)
  Sender: FDA-Public Use
  Company Number: PHHY2016AR100137

PATIENT
  Age: 12 Year
  Sex: Male
  Weight: 50 kg

DRUGS (4)
  1. RITALIN LA [Suspect]
     Active Substance: METHYLPHENIDATE HYDROCHLORIDE
     Indication: ATTENTION DEFICIT/HYPERACTIVITY DISORDER
     Dosage: 1 DF, QD (STRENGTH: 40 MG)
     Route: 065
     Dates: start: 2010, end: 20131226
  2. RITALIN LA [Suspect]
     Active Substance: METHYLPHENIDATE HYDROCHLORIDE
     Dosage: 2 DF, QD (STRENGTH: 40 MG)
     Route: 065
  3. RITALIN LA [Suspect]
     Active Substance: METHYLPHENIDATE HYDROCHLORIDE
     Dosage: 60 MG, QD (1 DF OF 40 MG CAPSULE AND 2 DF OF 10 MG CAPSULES)
     Route: 065
  4. RITALIN LA [Suspect]
     Active Substance: METHYLPHENIDATE HYDROCHLORIDE
     Dosage: 1 DF, QD (STRENGTH: 40 MG)
     Route: 065

REACTIONS (13)
  - Complications of limb reattachment surgery [Unknown]
  - Sleep disorder [Unknown]
  - Limb traumatic amputation [Recovering/Resolving]
  - Phobia [Unknown]
  - Persecutory delusion [Unknown]
  - Road traffic accident [Recovered/Resolved]
  - Restlessness [Unknown]
  - Ligament sprain [Recovered/Resolved]
  - Generalised anxiety disorder [Unknown]
  - Rebound effect [Unknown]
  - Vomiting [Unknown]
  - Headache [Unknown]
  - Therapeutic response decreased [Unknown]

NARRATIVE: CASE EVENT DATE: 20131227
